FAERS Safety Report 15153916 (Version 1)
Quarter: 2018Q3

REPORT INFORMATION
  Report Type: Spontaneous
  Country: CA (occurrence: CA)
  Receive Date: 20180717
  Receipt Date: 20180717
  Transmission Date: 20181010
  Serious: Yes (Other)
  Sender: FDA-Public Use
  Company Number: CA-PFIZER INC-2017158428

PATIENT
  Age: 51 Year
  Sex: Female

DRUGS (1)
  1. METHOTREXATE SODIUM. [Suspect]
     Active Substance: METHOTREXATE SODIUM
     Indication: RHEUMATOID ARTHRITIS
     Dosage: 25 MG, UNK
     Dates: start: 20150601, end: 20170401

REACTIONS (6)
  - Dizziness [Unknown]
  - Hepatitis [Recovered/Resolved]
  - Fatigue [Unknown]
  - Drug intolerance [Recovered/Resolved]
  - Dyspepsia [Recovered/Resolved]
  - Pruritus [Unknown]
